FAERS Safety Report 7006970-X (Version None)
Quarter: 2010Q3

REPORT INFORMATION
  Report Type: 
  Country: None (occurrence: None)
  Receive Date: 20100922
  Receipt Date: 20100913
  Transmission Date: 20110219
  Serious: Yes (Other)
  Sender: FDA-Public Use
  Company Number: US-JNJFOC-20100904797

PATIENT
  Sex: Female
  Weight: 45.81 kg

DRUGS (7)
  1. FENTANYL CITRATE [Suspect]
     Indication: NEURALGIA
     Route: 062
  2. FENTANYL CITRATE [Suspect]
     Indication: NEURALGIA
     Dosage: TWO PATCHES OF 12.5UG/HR
     Route: 062
  3. NYSTATIN [Suspect]
     Indication: ORAL FUNGAL INFECTION
     Route: 048
  4. CLOTRIMAZOLE [Suspect]
     Indication: ORAL FUNGAL INFECTION
     Route: 048
  5. OMEPRAZOLE [Suspect]
     Indication: GASTROOESOPHAGEAL REFLUX DISEASE
     Route: 048
  6. METHADONE HCL [Concomitant]
     Indication: NEURALGIA
     Dosage: 5 MG/UNKNOWN NUMBER OF TABLETS TWICE DAILY
     Route: 048
  7. METHADONE HCL [Concomitant]
     Dosage: 5 MG/2 TABLETS TWICE DAILY
     Route: 048

REACTIONS (15)
  - DIARRHOEA [None]
  - DRUG INEFFECTIVE [None]
  - DRY MOUTH [None]
  - DYSGEUSIA [None]
  - DYSPHAGIA [None]
  - GASTROOESOPHAGEAL REFLUX DISEASE [None]
  - HEADACHE [None]
  - HYPOVITAMINOSIS [None]
  - LARYNGEAL INJURY [None]
  - MALAISE [None]
  - ORAL FUNGAL INFECTION [None]
  - PRURITUS GENERALISED [None]
  - SINUSITIS [None]
  - TINNITUS [None]
  - TREMOR [None]
